FAERS Safety Report 10187360 (Version 1)
Quarter: 2014Q2

REPORT INFORMATION
  Report Type: Spontaneous
  Country: FR (occurrence: FR)
  Receive Date: 20140522
  Receipt Date: 20140522
  Transmission Date: 20141212
  Serious: Yes (Life-Threatening)
  Sender: FDA-Public Use
  Company Number: FR-MERCK-1405FRA005601

PATIENT
  Age: 32 Year
  Sex: Male

DRUGS (4)
  1. NORSET [Suspect]
     Dosage: UNK
     Route: 048
  2. DAFALGAN CODEINE [Suspect]
     Dosage: 32 G, ONCE
     Route: 048
     Dates: start: 20140318, end: 20140318
  3. LOXAPAC (LOXAPINE SUCCINATE) [Suspect]
     Route: 048
  4. VALIUM [Suspect]

REACTIONS (2)
  - Hepatitis fulminant [Recovered/Resolved]
  - Hepatic failure [Recovered/Resolved]
